FAERS Safety Report 9931143 (Version 2)
Quarter: 2014Q1

REPORT INFORMATION
  Report Type: Spontaneous
  Country: JP (occurrence: JP)
  Receive Date: 20140227
  Receipt Date: 20140311
  Transmission Date: 20141002
  Serious: Yes (Hospitalization)
  Sender: FDA-Public Use
  Company Number: PHHY2014JP023648

PATIENT
  Age: 82 Year
  Sex: Male
  Weight: 51 kg

DRUGS (13)
  1. EXELON PATCH [Suspect]
     Indication: SENILE DEMENTIA
     Dosage: 1.9 MG/24 HOURS (4.5 MG DAILY)
     Route: 062
     Dates: start: 201402, end: 20140217
  2. EXELON PATCH [Suspect]
     Indication: MEMORY IMPAIRMENT
  3. ROHYPNOL [Concomitant]
     Dosage: 2 MG, UNK
     Route: 048
  4. MYSLEE [Concomitant]
     Dosage: 10 MG, UNK
     Route: 048
  5. OMEPRAZOLE [Concomitant]
     Dosage: 10 MG, UNK
     Route: 048
  6. BLOPRESS [Concomitant]
     Dosage: 4 MG, UNK
     Route: 048
  7. NORVASC [Concomitant]
     Dosage: 1 UNK, UNK
     Route: 048
  8. THEOLONG [Concomitant]
     Dosage: 400 MG, UNK
     Route: 048
  9. PLETAAL [Concomitant]
     Dosage: 300 MG, UNK
     Route: 048
  10. BUP-4 [Concomitant]
     Dosage: 1 UNK, UNK
     Route: 048
  11. CALONAL [Concomitant]
     Dosage: 800 MG, UNK
     Route: 048
  12. OPALMON [Concomitant]
     Dosage: 15 UG, UNK
     Route: 048
  13. MAGMITT [Concomitant]
     Dosage: 990 MG, UNK
     Route: 048

REACTIONS (2)
  - Dyspnoea [Recovering/Resolving]
  - Decreased appetite [Recovering/Resolving]
